FAERS Safety Report 9502984 (Version 1)
Quarter: 2013Q3

REPORT INFORMATION
  Report Type: Spontaneous
  Country: CN (occurrence: CN)
  Receive Date: 20130906
  Receipt Date: 20130906
  Transmission Date: 20140515
  Serious: Yes (Other)
  Sender: FDA-Public Use
  Company Number: CN-ASTELLAS-2013JP009102

PATIENT
  Sex: Female

DRUGS (1)
  1. PROTOPIC [Suspect]
     Indication: PSORIASIS
     Dosage: UNK
     Route: 061

REACTIONS (2)
  - Off label use [Unknown]
  - Osteonecrosis [Not Recovered/Not Resolved]
